FAERS Safety Report 8530297-8 (Version None)
Quarter: 2012Q3

REPORT INFORMATION
  Report Type: 
  Country: None (occurrence: None)
  Receive Date: 20120723
  Receipt Date: 20120716
  Transmission Date: 20120928
  Serious: Yes (Other)
  Sender: FDA-Public Use
  Company Number: DE-ABBOTT-12P-062-0956522-00

PATIENT
  Sex: Female

DRUGS (1)
  1. HUMIRA [Suspect]
     Indication: PSORIATIC ARTHROPATHY
     Route: 058
     Dates: start: 20080520, end: 20120109

REACTIONS (6)
  - MULTIPLE SCLEROSIS [None]
  - DRUG SPECIFIC ANTIBODY PRESENT [None]
  - DRUG INEFFECTIVE [None]
  - HYPOAESTHESIA [None]
  - ENCEPHALITIS [None]
  - MYELITIS [None]
